FAERS Safety Report 8258617-2 (Version None)
Quarter: 2012Q1

REPORT INFORMATION
  Report Type: 
  Country: None (occurrence: None)
  Receive Date: 20120322
  Receipt Date: 20120220
  Transmission Date: 20120608
  Serious: Yes (Hospitalization)
  Sender: FDA-Public Use
  Company Number: UTC-015831

PATIENT
  Age: 59 Year
  Sex: Female
  Weight: 86.81 kg

DRUGS (3)
  1. ADCIRCA [Concomitant]
  2. TYVASO [Suspect]
     Indication: PULMONARY HYPERTENSION
     Dosage: 18-54 MCG (4 IN 1 D), INHALATION
     Route: 055
     Dates: start: 20110714
  3. DIURETICS (DIURETICS) [Concomitant]

REACTIONS (1)
  - MUSCLE SPASMS [None]
